FAERS Safety Report 23680157 (Version 6)
Quarter: 2025Q4

REPORT INFORMATION
  Report Type: Spontaneous
  Country: JP (occurrence: JP)
  Receive Date: 20240327
  Receipt Date: 20251217
  Transmission Date: 20260118
  Serious: Yes (Other)
  Sender: BRISTOL-MYERS SQUIBB COMPANY
  Company Number: JP-BRISTOL-MYERS SQUIBB COMPANY-2024-047304

PATIENT
  Age: 80 Year
  Sex: Male
  Weight: 63 kg

DRUGS (2)
  1. YERVOY [Suspect]
     Active Substance: IPILIMUMAB
     Indication: Non-small cell lung cancer
     Route: 041
  2. OPDIVO [Suspect]
     Active Substance: NIVOLUMAB
     Indication: Non-small cell lung cancer

REACTIONS (7)
  - Immune-mediated adverse reaction [Unknown]
  - Pyrexia [Unknown]
  - Cytokine release syndrome [Unknown]
  - Infusion related reaction [Unknown]
  - Immune-mediated lung disease [Unknown]
  - Hepatic function abnormal [Unknown]
  - Weight decreased [Unknown]

NARRATIVE: CASE EVENT DATE: 20221117
